FAERS Safety Report 6941784-8 (Version None)
Quarter: 2010Q3

REPORT INFORMATION
  Report Type: 
  Country: None (occurrence: None)
  Receive Date: 20100826
  Receipt Date: 20100817
  Transmission Date: 20110219
  Serious: Yes (Other)
  Sender: FDA-Public Use
  Company Number: US-SHIRE-SPV1-2010-01431

PATIENT

DRUGS (1)
  1. ELAPRASE [Suspect]
     Indication: MUCOPOLYSACCHARIDOSIS II
     Dosage: UNK, 1X/WEEK (1 VIAL WEEKLY)
     Route: 041
     Dates: start: 20090205

REACTIONS (2)
  - ASTHENIA [None]
  - CARDIAC FAILURE [None]
